FAERS Safety Report 20097274 (Version 7)
Quarter: 2022Q3

REPORT INFORMATION
  Report Type: Spontaneous
  Country: US (occurrence: US)
  Receive Date: 20211122
  Receipt Date: 20220805
  Transmission Date: 20221027
  Serious: No
  Sender: FDA-Public Use
  Company Number: US-AMGEN-USASP2021177274

PATIENT
  Age: 73 Year
  Sex: Female
  Weight: 67 kg

DRUGS (2)
  1. NEULASTA [Suspect]
     Active Substance: PEGFILGRASTIM
     Indication: Neutropenia
     Dosage: UNK
     Route: 065
  2. NEULASTA [Suspect]
     Active Substance: PEGFILGRASTIM
     Dosage: UNK
     Route: 065

REACTIONS (5)
  - Unintentional medical device removal [Unknown]
  - Accidental exposure to product [Unknown]
  - Device use error [Unknown]
  - Wrong technique in product usage process [Unknown]
  - Device failure [Unknown]

NARRATIVE: CASE EVENT DATE: 20211104
